FAERS Safety Report 5951560-0 (Version None)
Quarter: 2008Q4

REPORT INFORMATION
  Report Type: 
  Country: None (occurrence: None)
  Receive Date: 20081110
  Receipt Date: 20081031
  Transmission Date: 20090506
  Serious: Yes (Other)
  Sender: FDA-Public Use
  Company Number: 100#03#2008-05513

PATIENT
  Sex: Female

DRUGS (1)
  1. DOXYCYCLINE HCL [Suspect]
     Indication: PNEUMONIA
     Dosage: 100 MG ONCE DAILY

REACTIONS (1)
  - HEPATIC ENZYME INCREASED [None]
